FAERS Safety Report 7992439-2 (Version None)
Quarter: 2011Q4

REPORT INFORMATION
  Report Type: 
  Country: None (occurrence: None)
  Receive Date: 20111219
  Receipt Date: 20111209
  Transmission Date: 20120403
  Serious: Yes (Hospitalization)
  Sender: FDA-Public Use
  Company Number: PHHY2011DE51335

PATIENT
  Sex: Male
  Weight: 53 kg

DRUGS (3)
  1. ZOMETA [Suspect]
     Indication: METASTASES TO BONE
     Dosage: UNK UKN, UNK
     Route: 042
     Dates: start: 20080207, end: 20110315
  2. ELIGARD [Concomitant]
     Indication: PROSTATE CANCER
     Dosage: 22.5 MG, UNK
  3. METOPROLOL SUCCINATE [Concomitant]
     Indication: HYPERTENSION

REACTIONS (3)
  - OSTEONECROSIS OF JAW [None]
  - OROANTRAL FISTULA [None]
  - ORAL CAVITY FISTULA [None]
